FAERS Safety Report 23108995 (Version 1)
Quarter: 2023Q4

REPORT INFORMATION
  Report Type: Spontaneous
  Country: GB (occurrence: GB)
  Receive Date: 20231026
  Receipt Date: 20231026
  Transmission Date: 20240110
  Serious: Yes (Other)
  Sender: FDA-Public Use
  Company Number: GB-STRIDES ARCOLAB LIMITED-2023SP015944

PATIENT
  Age: 44 Year
  Sex: Female

DRUGS (4)
  1. TENOFOVIR DISOPROXIL FUMARATE [Suspect]
     Active Substance: TENOFOVIR DISOPROXIL FUMARATE
     Indication: Product used for unknown indication
     Dosage: 1 TAB/CAPS
     Route: 048
     Dates: start: 20160823
  2. RALTEGRAVIR [Suspect]
     Active Substance: RALTEGRAVIR
     Indication: Product used for unknown indication
     Dosage: 800 MILLIGRAM/DAY
     Route: 048
     Dates: start: 20160823
  3. LOPINAVIR\RITONAVIR [Suspect]
     Active Substance: LOPINAVIR\RITONAVIR
     Indication: Product used for unknown indication
     Dosage: 4 TAB/CAPS
     Route: 048
     Dates: start: 20160823
  4. MARAVIROC [Suspect]
     Active Substance: MARAVIROC
     Indication: Product used for unknown indication
     Dosage: 300 MILLIGRAM/DAY
     Route: 048
     Dates: start: 20160823

REACTIONS (2)
  - Abortion missed [Unknown]
  - Maternal exposure during pregnancy [Unknown]
